FAERS Safety Report 21209074 (Version 2)
Quarter: 2022Q3

REPORT INFORMATION
  Report Type: Spontaneous
  Country: ES (occurrence: ES)
  Receive Date: 20220812
  Receipt Date: 20220818
  Transmission Date: 20221027
  Serious: Yes (Death, Hospitalization, Other)
  Sender: FDA-Public Use
  Company Number: None

PATIENT
  Age: 53 Year
  Sex: Male

DRUGS (1)
  1. YESCARTA [Suspect]
     Active Substance: AXICABTAGENE CILOLEUCEL
     Indication: Diffuse large B-cell lymphoma
     Dosage: 0.4 - 2 X 10^8 CELLS SUSPENSION FOR  INFUSION, ONE 68-ML BAG
     Route: 042
     Dates: start: 20220714, end: 20220714

REACTIONS (3)
  - Immune effector cell-associated neurotoxicity syndrome [Fatal]
  - Cytokine release syndrome [Fatal]
  - Encephalopathy [Fatal]

NARRATIVE: CASE EVENT DATE: 20220716
